FAERS Safety Report 8730180 (Version 2)
Quarter: 2012Q4

REPORT INFORMATION
  Report Type: 
  Country: JP (occurrence: JP)
  Receive Date: 20120817
  Receipt Date: 20120907
  Transmission Date: 20130627
  Serious: Yes (Death)
  Sender: FDA-Public Use
  Company Number: JP-B.I. PHARMACEUTICALS,INC./RIDGEFIELD-2012-BP-19238NB

PATIENT

DRUGS (1)
  1. PRAZAXA [Suspect]
     Dosage: 110 mg
     Route: 048

REACTIONS (3)
  - Cardio-respiratory arrest [Fatal]
  - Gastrointestinal haemorrhage [Unknown]
  - Haemorrhage [Unknown]
